FAERS Safety Report 5746970-0 (Version None)
Quarter: 2008Q2

REPORT INFORMATION
  Report Type: 
  Country: None (occurrence: None)
  Receive Date: 20080522
  Receipt Date: 20080515
  Transmission Date: 20081010
  Serious: Yes (Other)
  Sender: FDA-Public Use
  Company Number: US-PFIZER INC-2008041879

PATIENT
  Sex: Female
  Weight: 59 kg

DRUGS (11)
  1. DEPO-PROVERA SUSPENSION/INJ [Suspect]
     Indication: UTERINE CYST
     Dosage: FREQ:SINGLE INJECTION
     Dates: start: 20070501, end: 20070501
  2. PREVACID [Concomitant]
  3. CYMBALTA [Concomitant]
  4. VITAMIN B COMPLEX CAP [Concomitant]
  5. VITAMIN D [Concomitant]
  6. CALCIUM [Concomitant]
  7. OXYCONTIN [Concomitant]
  8. FLEXERIL [Concomitant]
  9. HYDROXYZINE [Concomitant]
  10. METHYLPHENIDATE HCL [Concomitant]
  11. ELMIRON [Concomitant]

REACTIONS (3)
  - FATIGUE [None]
  - FIBROMYALGIA [None]
  - WEIGHT INCREASED [None]
